FAERS Safety Report 7207833-7 (Version None)
Quarter: 2011Q1

REPORT INFORMATION
  Report Type: 
  Country: None (occurrence: None)
  Receive Date: 20110104
  Receipt Date: 20101224
  Transmission Date: 20110831
  Serious: Yes (Life-Threatening)
  Sender: FDA-Public Use
  Company Number: US-BAXTER-2010BH028369

PATIENT
  Age: 55 Year
  Sex: Female

DRUGS (6)
  1. GAMMAGARD LIQUID [Suspect]
     Route: 065
     Dates: start: 20080101
  2. GAMMAGARD LIQUID [Suspect]
     Route: 042
     Dates: start: 20100211, end: 20101105
  3. GAMMAGARD LIQUID [Suspect]
     Indication: MYASTHENIA GRAVIS
     Route: 042
     Dates: start: 20101105, end: 20101105
  4. GAMMAGARD LIQUID [Suspect]
     Indication: OFF LABEL USE
     Route: 042
     Dates: start: 20101105, end: 20101105
  5. GAMMAGARD LIQUID [Suspect]
     Route: 065
     Dates: start: 20080101
  6. GAMMAGARD LIQUID [Suspect]
     Route: 042
     Dates: start: 20100211, end: 20101105

REACTIONS (1)
  - BLISTER [None]
